FAERS Safety Report 5268943-7 (Version None)
Quarter: 2007Q1

REPORT INFORMATION
  Report Type: 
  Country: None (occurrence: None)
  Receive Date: 20070319
  Receipt Date: 20070308
  Transmission Date: 20070707
  Serious: Yes (Other)
  Sender: FDA-Public Use
  Company Number: US-JNJFOC-20070302720

PATIENT
  Sex: Female
  Weight: 81.65 kg

DRUGS (3)
  1. DURAGESIC-100 [Suspect]
     Route: 062
  2. DURAGESIC-100 [Suspect]
     Route: 062
  3. DURAGESIC-100 [Suspect]
     Indication: PAIN
     Route: 062

REACTIONS (5)
  - CEREBROVASCULAR ACCIDENT [None]
  - INSOMNIA [None]
  - MEDICAL DEVICE COMPLICATION [None]
  - PAIN [None]
  - THERAPEUTIC PRODUCT INEFFECTIVE [None]
